FAERS Safety Report 25482384 (Version 2)
Quarter: 2025Q3

REPORT INFORMATION
  Report Type: Report from Study
  Country: US (occurrence: US)
  Receive Date: 20250626
  Receipt Date: 20250911
  Transmission Date: 20251021
  Serious: Yes (Other)
  Sender: ABBVIE
  Company Number: US-ABBVIE-6340955

PATIENT
  Age: 63 Year
  Sex: Female

DRUGS (1)
  1. SKYRIZI [Suspect]
     Active Substance: RISANKIZUMAB-RZAA
     Indication: Psoriatic arthropathy
     Route: 058
     Dates: start: 20240109

REACTIONS (6)
  - Gallbladder operation [Recovered/Resolved]
  - Neuropathy peripheral [Not Recovered/Not Resolved]
  - Diplopia [Not Recovered/Not Resolved]
  - Headache [Unknown]
  - Urinary tract infection [Unknown]
  - Hypoaesthesia [Not Recovered/Not Resolved]

NARRATIVE: CASE EVENT DATE: 20250101
